FAERS Safety Report 9574898 (Version 2)
Quarter: 2013Q4

REPORT INFORMATION
  Report Type: Spontaneous
  Country: US (occurrence: US)
  Receive Date: 20131001
  Receipt Date: 20131018
  Transmission Date: 20140711
  Serious: Yes (Other)
  Sender: FDA-Public Use
  Company Number: US-BAYER-2013-118730

PATIENT
  Sex: 0

DRUGS (1)
  1. EOVIST [Suspect]
     Dosage: UNK
     Dates: start: 20130925, end: 20130925

REACTIONS (1)
  - Contrast media reaction [None]
